FAERS Safety Report 8861314 (Version 2)
Quarter: 2012Q4

REPORT INFORMATION
  Report Type: 
  Country: US (occurrence: US)
  Receive Date: 20121026
  Receipt Date: 20121107
  Transmission Date: 20130627
  Serious: No
  Sender: FDA-Public Use
  Company Number: US-PFIZER INC-2012266674

PATIENT
  Age: 61 Year
  Sex: Female
  Weight: 56.69 kg

DRUGS (1)
  1. EPIPEN [Suspect]
     Indication: ALLERGIC REACTION
     Dosage: UNK
     Dates: start: 2007

REACTIONS (2)
  - Accidental exposure to product [Recovered/Resolved]
  - Injection site pallor [Recovered/Resolved]
